FAERS Safety Report 4722066-1 (Version None)
Quarter: 2005Q3

REPORT INFORMATION
  Report Type: 
  Country: None (occurrence: None)
  Receive Date: 20050720
  Receipt Date: 20050707
  Transmission Date: 20060218
  Serious: Yes (Hospitalization)
  Sender: FDA-Public Use
  Company Number: 191546

PATIENT
  Age: 60 Year
  Sex: Female

DRUGS (2)
  1. AVONEX [Suspect]
     Indication: MULTIPLE SCLEROSIS
     Dosage: 30 UG; QW; IM
     Dates: start: 20010823, end: 20030801
  2. AVONEX [Suspect]
     Dosage: 30 UG; QW; IM
     Route: 030
     Dates: start: 20030828, end: 20040114

REACTIONS (1)
  - HOSPITALISATION [None]
